FAERS Safety Report 7487100-7 (Version None)
Quarter: 2011Q2

REPORT INFORMATION
  Report Type: 
  Country: None (occurrence: None)
  Receive Date: 20110509
  Receipt Date: 20110426
  Transmission Date: 20111010
  Serious: Yes (Hospitalization)
  Sender: FDA-Public Use
  Company Number: B0717077A

PATIENT
  Sex: Male

DRUGS (5)
  1. LEVETIRACETAM [Suspect]
  2. LAMICTAL [Suspect]
  3. VITAMIN K TAB [Concomitant]
  4. THIOPENTAL SODIUM [Concomitant]
  5. DIAZEPAM [Concomitant]

REACTIONS (16)
  - DEPRESSED LEVEL OF CONSCIOUSNESS [None]
  - DRUG RESISTANCE [None]
  - DYSTONIA [None]
  - HEPATORENAL FAILURE [None]
  - DEVELOPMENTAL DELAY [None]
  - SPEECH DISORDER [None]
  - CARDIO-RESPIRATORY ARREST [None]
  - METABOLIC ACIDOSIS [None]
  - CHOREOATHETOSIS [None]
  - HYPERPYREXIA [None]
  - NEUROLOGICAL DECOMPENSATION [None]
  - ENCEPHALOPATHY [None]
  - MOVEMENT DISORDER [None]
  - RHABDOMYOLYSIS [None]
  - STATUS EPILEPTICUS [None]
  - AUTISM SPECTRUM DISORDER [None]
